FAERS Safety Report 8494421-8 (Version None)
Quarter: 2012Q3

REPORT INFORMATION
  Report Type: 
  Country: None (occurrence: None)
  Receive Date: 20120709
  Receipt Date: 20120704
  Transmission Date: 20120928
  Serious: Yes (Death)
  Sender: FDA-Public Use
  Company Number: US-SANOFI-AVENTIS-2012SA006566

PATIENT
  Age: 73 Year
  Sex: Female

DRUGS (5)
  1. ATENOLOL [Suspect]
     Route: 048
  2. HYDROXYCHLOROQUINE SULFATE [Suspect]
     Route: 048
  3. DILTIAZEM HCL [Suspect]
     Route: 048
  4. METHOTREXATE [Suspect]
     Route: 048
  5. BENAZEPRIL HYDROCHLORIDE [Suspect]
     Route: 048

REACTIONS (2)
  - MEDICATION ERROR [None]
  - DEATH [None]
